FAERS Safety Report 6055684-1 (Version None)
Quarter: 2009Q1

REPORT INFORMATION
  Report Type: 
  Country: None (occurrence: None)
  Receive Date: 20090126
  Receipt Date: 20090109
  Transmission Date: 20090719
  Serious: Yes (Hospitalization)
  Sender: FDA-Public Use
  Company Number: B0554732A

PATIENT
  Sex: 0

DRUGS (3)
  1. DIGOXIN [Suspect]
  2. DILTIAZEM HCL [Concomitant]
  3. FRUSEMIDE [Concomitant]

REACTIONS (1)
  - THERAPEUTIC AGENT TOXICITY [None]
